FAERS Safety Report 4592302-3 (Version None)
Quarter: 2005Q1

REPORT INFORMATION
  Report Type: 
  Country: None (occurrence: None)
  Receive Date: 20050228
  Receipt Date: 20041123
  Transmission Date: 20050727
  Serious: Yes (Other)
  Sender: FDA-Public Use
  Company Number: US-BRISTOL-MYERS SQUIBB COMPANY-12775342

PATIENT
  Age: 30 Year
  Sex: Male

DRUGS (4)
  1. ABILIFY [Suspect]
     Indication: DELUSIONAL DISORDER, UNSPECIFIED TYPE
     Route: 048
     Dates: start: 20030922, end: 20041123
  2. EFFEXOR XR [Concomitant]
     Indication: MANIA
     Route: 048
     Dates: start: 19980413
  3. NEURONTIN [Concomitant]
     Route: 048
     Dates: start: 20000124
  4. MAVIK [Concomitant]

REACTIONS (1)
  - PANCREATITIS [None]
